FAERS Safety Report 9202496 (Version 1)
Quarter: 2013Q2

REPORT INFORMATION
  Report Type: Spontaneous
  Country: US (occurrence: US)
  Receive Date: 20130401
  Receipt Date: 20130401
  Transmission Date: 20140414
  Serious: No
  Sender: FDA-Public Use
  Company Number: US-ASTRAZENECA-2013SE18076

PATIENT
  Age: 75 Year
  Sex: Female
  Weight: 97.1 kg

DRUGS (11)
  1. NEXIUM [Suspect]
     Indication: GASTROOESOPHAGEAL REFLUX DISEASE
     Route: 048
  2. NEXIUM [Suspect]
     Indication: HIATUS HERNIA
     Route: 048
  3. PRILOSEC [Suspect]
     Indication: GASTROOESOPHAGEAL REFLUX DISEASE
     Route: 048
  4. PRILOSEC [Suspect]
     Indication: HIATUS HERNIA
     Route: 048
  5. PRILOSEC [Suspect]
     Indication: GASTROOESOPHAGEAL REFLUX DISEASE
     Dosage: GENERIC
     Route: 048
  6. PRILOSEC [Suspect]
     Indication: HIATUS HERNIA
     Dosage: GENERIC
     Route: 048
  7. SYNTHROID [Concomitant]
     Indication: THYROID DISORDER
  8. CYMBALTA [Concomitant]
     Indication: PAIN
  9. CYMBALTA [Concomitant]
     Indication: DEPRESSION
  10. CELEBREX [Concomitant]
     Indication: PAIN
  11. HYDROCODONE [Concomitant]
     Indication: PAIN

REACTIONS (11)
  - Condition aggravated [Unknown]
  - Back pain [Unknown]
  - Fractured sacrum [Unknown]
  - Bone disorder [Unknown]
  - Chest pain [Unknown]
  - Gastrooesophageal reflux disease [Unknown]
  - Pain [Unknown]
  - Headache [Unknown]
  - Arthralgia [Unknown]
  - Drug dispensing error [Unknown]
  - Drug ineffective [Unknown]
